FAERS Safety Report 7747416-3 (Version None)
Quarter: 2011Q3

REPORT INFORMATION
  Report Type: 
  Country: None (occurrence: None)
  Receive Date: 20110913
  Receipt Date: 20110901
  Transmission Date: 20111222
  Serious: Yes (Death, Hospitalization)
  Sender: FDA-Public Use
  Company Number: FR-GLAXOSMITHKLINE-B0743867A

PATIENT
  Sex: Male

DRUGS (4)
  1. ARIXTRA [Suspect]
     Indication: ACUTE CORONARY SYNDROME
     Dosage: 2.5MG UNKNOWN
     Route: 058
     Dates: start: 20110801, end: 20110801
  2. PRASUGREL [Suspect]
     Indication: PRODUCT USED FOR UNKNOWN INDICATION
     Dosage: 60MG UNKNOWN
     Route: 042
     Dates: start: 20110801, end: 20110801
  3. ASPEGIC 325 [Suspect]
     Indication: PRODUCT USED FOR UNKNOWN INDICATION
     Dosage: 250MG UNKNOWN
     Route: 042
     Dates: start: 20110801, end: 20110801
  4. HEPARIN [Suspect]
     Indication: PRODUCT USED FOR UNKNOWN INDICATION
     Dosage: 4000IU UNKNOWN
     Route: 042
     Dates: start: 20110801, end: 20110801

REACTIONS (6)
  - CEREBROVASCULAR ACCIDENT [None]
  - DISTURBANCE IN ATTENTION [None]
  - CEREBRAL HAEMATOMA [None]
  - HEMIPLEGIA [None]
  - BRAIN OEDEMA [None]
  - ALTERED STATE OF CONSCIOUSNESS [None]
